FAERS Safety Report 6930102-7 (Version None)
Quarter: 2010Q3

REPORT INFORMATION
  Report Type: 
  Country: None (occurrence: None)
  Receive Date: 20100818
  Receipt Date: 20091103
  Transmission Date: 20110219
  Serious: No
  Sender: FDA-Public Use
  Company Number: US-ASTRAZENECA-2009SE24227

PATIENT
  Sex: Female
  Weight: 53.1 kg

DRUGS (1)
  1. IRESSA [Suspect]
     Route: 048

REACTIONS (3)
  - ALOPECIA [None]
  - DIARRHOEA [None]
  - HAIR TEXTURE ABNORMAL [None]
